FAERS Safety Report 7608106-0 (Version None)
Quarter: 2011Q3

REPORT INFORMATION
  Report Type: 
  Country: None (occurrence: None)
  Receive Date: 20110714
  Receipt Date: 20110630
  Transmission Date: 20111222
  Serious: Yes (Other)
  Sender: FDA-Public Use
  Company Number: RU-RANBAXY-2010R3-35267

PATIENT

DRUGS (1)
  1. CLARITHROMYCIN [Suspect]
     Indication: TRACHEITIS
     Dosage: 500 MG, BID
     Route: 048
     Dates: start: 20100619, end: 20100620

REACTIONS (3)
  - TACHYCARDIA [None]
  - DYSPNOEA [None]
  - PHARYNGEAL OEDEMA [None]
